FAERS Safety Report 4300835-X (Version None)
Quarter: 2004Q1

REPORT INFORMATION
  Report Type: 
  Country: None (occurrence: None)
  Receive Date: 20040220
  Receipt Date: 20040213
  Transmission Date: 20041129
  Serious: Yes (Life-Threatening)
  Sender: FDA-Public Use
  Company Number: WAES 0402AUS00122

PATIENT
  Age: 78 Year
  Sex: Female
  Weight: 55 kg

DRUGS (10)
  1. CALCITRIOL [Concomitant]
     Indication: BONE DISORDER
     Dates: start: 20000913
  2. CARVEDILOL [Concomitant]
     Indication: CARDIAC FAILURE CONGESTIVE
     Dates: start: 19990122
  3. DOTHIEPIN HYDROCHLORIDE [Concomitant]
     Indication: PAIN
     Dates: start: 19981214
  4. FUROSEMIDE [Concomitant]
     Indication: CARDIAC FAILURE CONGESTIVE
  5. NICORANDIL [Concomitant]
     Indication: MYOCARDIAL ISCHAEMIA
     Dates: start: 19980702
  6. PERHEXILINE MALEATE [Concomitant]
     Indication: MYOCARDIAL ISCHAEMIA
  7. ZOCOR [Suspect]
     Dates: start: 20010501, end: 20010802
  8. ZOCOR [Suspect]
     Route: 048
  9. SPIRONOLACTONE [Concomitant]
     Indication: CARDIAC FAILURE CONGESTIVE
     Dates: start: 19991216
  10. WARFARIN SODIUM [Concomitant]

REACTIONS (3)
  - BLOOD CREATINE PHOSPHOKINASE INCREASED [None]
  - HEPATIC FUNCTION ABNORMAL [None]
  - MYOSITIS [None]
